FAERS Safety Report 6038943-8 (Version None)
Quarter: 2009Q1

REPORT INFORMATION
  Report Type: 
  Country: None (occurrence: None)
  Receive Date: 20090115
  Receipt Date: 20090109
  Transmission Date: 20090719
  Serious: Yes (Disabling)
  Sender: FDA-Public Use
  Company Number: IE-BAYER-200710050BNE

PATIENT
  Age: 88 Year
  Sex: Male

DRUGS (4)
  1. CIPROFLOXACIN HCL [Suspect]
     Indication: IDIOPATHIC PULMONARY FIBROSIS
     Dosage: TOTAL DAILY DOSE: 500 MG
     Route: 048
     Dates: start: 20060119, end: 20060101
  2. CALCORT [Concomitant]
  3. CALCORT [Concomitant]
  4. IMURAN [Concomitant]

REACTIONS (7)
  - GROIN PAIN [None]
  - HAEMORRHAGE SUBCUTANEOUS [None]
  - MUSCULAR WEAKNESS [None]
  - MUSCULOSKELETAL PAIN [None]
  - MYALGIA [None]
  - TENDON INJURY [None]
  - TENDON PAIN [None]
